FAERS Safety Report 7327902-0 (Version None)
Quarter: 2011Q1

REPORT INFORMATION
  Report Type: 
  Country: None (occurrence: None)
  Receive Date: 20110218
  Receipt Date: 20110204
  Transmission Date: 20110831
  Serious: Yes (Other)
  Sender: FDA-Public Use
  Company Number: 026947

PATIENT
  Sex: Male

DRUGS (2)
  1. CIMZIA [Suspect]
     Indication: RHEUMATOID ARTHRITIS
     Dosage: (400 MG 1X/2 WEEKS SUBCUTANEOUS), (400 MG 1X/28 DAYS SUBCUTANEOUS)
     Route: 058
     Dates: start: 20101117
  2. CIMZIA [Suspect]
     Indication: RHEUMATOID ARTHRITIS
     Dosage: (400 MG 1X/2 WEEKS SUBCUTANEOUS), (400 MG 1X/28 DAYS SUBCUTANEOUS)
     Route: 058
     Dates: start: 20101019, end: 20100101

REACTIONS (7)
  - COUGH [None]
  - DRUG DOSE OMISSION [None]
  - PYREXIA [None]
  - SOMNOLENCE [None]
  - MALAISE [None]
  - IMPAIRED WORK ABILITY [None]
  - CYTOMEGALOVIRUS INFECTION [None]
